FAERS Safety Report 9712810 (Version 1)
Quarter: 2013Q4

REPORT INFORMATION
  Report Type: Spontaneous
  Country: US (occurrence: US)
  Receive Date: 20131126
  Receipt Date: 20131126
  Transmission Date: 20140711
  Serious: No
  Sender: FDA-Public Use
  Company Number: US-BRISTOL-MYERS SQUIBB COMPANY-18916783

PATIENT
  Age: 52 Year
  Sex: Female
  Weight: 72.56 kg

DRUGS (3)
  1. BYDUREON [Suspect]
     Indication: TYPE 2 DIABETES MELLITUS
     Dates: start: 2013, end: 201305
  2. METFORMIN [Concomitant]
  3. LISINOPRIL [Concomitant]

REACTIONS (3)
  - Injection site mass [Recovering/Resolving]
  - Injection site erythema [Recovered/Resolved]
  - Injection site swelling [Unknown]
